FAERS Safety Report 8492476-8 (Version None)
Quarter: 2012Q3

REPORT INFORMATION
  Report Type: 
  Country: None (occurrence: None)
  Receive Date: 20120706
  Receipt Date: 20120621
  Transmission Date: 20120928
  Serious: Yes (Hospitalization)
  Sender: FDA-Public Use
  Company Number: JP-ROCHE-1050013

PATIENT
  Sex: Female
  Weight: 46.5 kg

DRUGS (2)
  1. ROCEPHIN [Suspect]
     Indication: PYREXIA
     Route: 041
     Dates: start: 20101102, end: 20101104
  2. CEFAZOLIN SODIUM [Suspect]
     Indication: PYREXIA
     Route: 041
     Dates: start: 20101026, end: 20101101

REACTIONS (2)
  - PANCYTOPENIA [None]
  - COAGULATION FACTOR V LEVEL ABNORMAL [None]
